FAERS Safety Report 5748222-1 (Version None)
Quarter: 2008Q2

REPORT INFORMATION
  Report Type: 
  Country: None (occurrence: None)
  Receive Date: 20080523
  Receipt Date: 20080513
  Transmission Date: 20081010
  Serious: Yes (Life-Threatening, Other)
  Sender: FDA-Public Use
  Company Number: US-PFIZER INC-2008041422

PATIENT
  Sex: Female
  Weight: 67.272 kg

DRUGS (3)
  1. CELONTIN [Suspect]
     Indication: PETIT MAL EPILEPSY
  2. PHENOBARBITONE [Concomitant]
     Indication: GRAND MAL CONVULSION
  3. DILANTIN [Concomitant]
     Indication: GRAND MAL CONVULSION

REACTIONS (3)
  - BUNDLE BRANCH BLOCK [None]
  - NECK INJURY [None]
  - VERTIGO [None]
